FAERS Safety Report 21812215 (Version 4)
Quarter: 2023Q1

REPORT INFORMATION
  Report Type: Report from Study
  Country: KR (occurrence: None)
  Receive Date: 20230103
  Receipt Date: 20230118
  Transmission Date: 20230418
  Serious: Yes (Hospitalization)
  Sender: FDA-Public Use
  Company Number: KR-ROCHE-3254737

PATIENT
  Age: 62 Year
  Sex: Female
  Weight: 49.3 kg

DRUGS (29)
  1. MOSUNETUZUMAB [Suspect]
     Active Substance: MOSUNETUZUMAB
     Indication: B-cell lymphoma
     Dosage: DOSE LAST STUDY DRUG ADMIN PRIOR AE/SAE 45MG, START DATE OF MOST RECENT DOSE OF STUDY DRUG?PRIOR TO
     Route: 058
     Dates: start: 20221221
  2. POLATUZUMAB VEDOTIN [Suspect]
     Active Substance: POLATUZUMAB VEDOTIN
     Indication: B-cell lymphoma
     Dosage: DOSE LAST STUDY DRUG ADMIN PRIOR AE/SAE 88.74 MG, START DATE OF MOST RECENT DOSE OF STUDY DRUG?PRIOR
     Route: 042
     Dates: start: 20221221
  3. DEXLANSOPRAZOLE [Concomitant]
     Active Substance: DEXLANSOPRAZOLE
     Dosage: 1 CAPSULE
     Route: 048
     Dates: start: 20220720
  4. SULFAMETHOXAZOLE\TRIMETHOPRIM [Concomitant]
     Active Substance: SULFAMETHOXAZOLE\TRIMETHOPRIM
     Indication: Antibiotic prophylaxis
     Route: 048
     Dates: start: 20220722
  5. ENTECAVIR [Concomitant]
     Active Substance: ENTECAVIR
     Route: 048
     Dates: start: 20220726
  6. ZOLPIDEM [Concomitant]
     Active Substance: ZOLPIDEM TARTRATE
     Route: 048
     Dates: start: 20220823
  7. PARAMACET SEMI [Concomitant]
     Route: 048
     Dates: start: 20221004, end: 20221220
  8. ENTELON [Concomitant]
     Dosage: 1 CAPSULE
     Route: 048
     Dates: start: 20221109
  9. ROSUVASTATIN [Concomitant]
     Active Substance: ROSUVASTATIN
     Indication: Dyslipidaemia
     Route: 048
     Dates: start: 20221109
  10. MEGESTROL ACETATE [Concomitant]
     Active Substance: MEGESTROL ACETATE
     Dosage: 1 OTHER
     Route: 048
     Dates: start: 20221110
  11. DICAMAX D [Concomitant]
     Route: 048
     Dates: start: 20221103
  12. LAMINA-G [Concomitant]
     Dosage: 1 OTHER
     Route: 048
     Dates: start: 20221212, end: 20221220
  13. ROXITHROMYCIN [Concomitant]
     Active Substance: ROXITHROMYCIN
     Route: 048
     Dates: start: 20221205, end: 20221229
  14. TEGOPRAZAN [Concomitant]
     Active Substance: TEGOPRAZAN
     Route: 048
     Dates: start: 20221205, end: 20221229
  15. FEXOFENADINE [Concomitant]
     Active Substance: FEXOFENADINE HYDROCHLORIDE
     Route: 048
     Dates: start: 20221205, end: 20221229
  16. VARIDASE [Concomitant]
     Route: 048
     Dates: start: 20221208, end: 20221229
  17. GRASIN [Concomitant]
     Dosage: 1 OTHER
     Route: 058
     Dates: start: 20221220, end: 20221220
  18. HEXAMEDIN [Concomitant]
     Dosage: 1 OTHER
     Route: 048
     Dates: start: 20221229
  19. TANTUM [Concomitant]
     Active Substance: BENZYDAMINE HYDROCHLORIDE
     Dosage: 1 OTHER
     Route: 048
     Dates: start: 20221229
  20. POTASSIUM CHLORIDE [Concomitant]
     Active Substance: POTASSIUM CHLORIDE
     Dosage: 1 OTHER
     Route: 042
     Dates: start: 20221229, end: 20221229
  21. RAMOSETRON HYDROCHLORIDE [Concomitant]
     Active Substance: RAMOSETRON HYDROCHLORIDE
     Dosage: 1 OTHER
     Route: 042
     Dates: start: 20221221
  22. CHLORPHENIRAMINE MALEATE [Concomitant]
     Active Substance: CHLORPHENIRAMINE MALEATE
     Indication: Pruritus
     Dosage: 1 AMPULE
     Route: 042
     Dates: start: 20221221, end: 20230109
  23. CHLORPHENIRAMINE MALEATE [Concomitant]
     Active Substance: CHLORPHENIRAMINE MALEATE
     Dosage: 1 AMPULE
     Route: 042
     Dates: start: 20230105, end: 20230106
  24. CHLORPHENIRAMINE MALEATE [Concomitant]
     Active Substance: CHLORPHENIRAMINE MALEATE
     Dosage: 1 AMPULE
     Route: 042
     Dates: start: 20230106, end: 20230106
  25. DEXAMETHASONE SODIUM PHOSPHATE [Concomitant]
     Active Substance: DEXAMETHASONE SODIUM PHOSPHATE
     Route: 042
     Dates: start: 20221221, end: 20221221
  26. DEXAMETHASONE SODIUM PHOSPHATE [Concomitant]
     Active Substance: DEXAMETHASONE SODIUM PHOSPHATE
     Route: 042
     Dates: start: 20221227, end: 20221227
  27. TRAMADOL HYDROCHLORIDE [Concomitant]
     Active Substance: TRAMADOL HYDROCHLORIDE
     Indication: Back pain
     Dosage: 1 AMPULE
     Route: 042
     Dates: start: 20230104, end: 20230104
  28. DESOWEN [Concomitant]
     Active Substance: DESONIDE
     Indication: Pruritus
     Route: 062
     Dates: start: 20230106
  29. HUMAN RED BLOOD CELL [Concomitant]
     Active Substance: HUMAN RED BLOOD CELL
     Indication: Anaemia
     Dosage: 2 OTHER
     Route: 042
     Dates: start: 20230106, end: 20230106

REACTIONS (1)
  - COVID-19 [Recovered/Resolved]

NARRATIVE: CASE EVENT DATE: 20221228
